FAERS Safety Report 4458283-8 (Version None)
Quarter: 2004Q3

REPORT INFORMATION
  Report Type: 
  Country: None (occurrence: None)
  Receive Date: 20040924
  Receipt Date: 20040914
  Transmission Date: 20050211
  Serious: Yes (Hospitalization, Other)
  Sender: FDA-Public Use
  Company Number: US-BRISTOL-MYERS SQUIBB COMPANY-12701314

PATIENT
  Age: 55 Year
  Sex: Female
  Weight: 52 kg

DRUGS (4)
  1. CISPLATIN [Suspect]
     Indication: NEOPLASM MALIGNANT
     Dosage: INITIAL DOSE 15-OCT-1998
     Route: 042
     Dates: start: 19981109, end: 19981109
  2. CETUXIMAB [Suspect]
     Indication: NEOPLASM MALIGNANT
     Dosage: LOADING DOSE 500 MG/M2 IV ON 15-OCT-1998
     Route: 042
     Dates: start: 19981109, end: 19981109
  3. AUGMENTIN '500' [Suspect]
     Indication: FOLLICULITIS
     Dates: start: 19981111, end: 19981116
  4. BIAXIN [Suspect]
     Indication: FOLLICULITIS
     Dates: start: 19981109, end: 19981110

REACTIONS (3)
  - ANAEMIA [None]
  - DEHYDRATION [None]
  - HYPOKALAEMIA [None]
